FAERS Safety Report 20264655 (Version 1)
Quarter: 2021Q4

REPORT INFORMATION
  Report Type: Spontaneous
  Country: US (occurrence: US)
  Receive Date: 20211231
  Receipt Date: 20211231
  Transmission Date: 20220303
  Serious: Yes (Other)
  Sender: FDA-Public Use
  Company Number: US-PFIZER INC-202101812199

PATIENT
  Age: 59 Year
  Sex: Female

DRUGS (2)
  1. CLINDAMYCIN HYDROCHLORIDE [Suspect]
     Active Substance: CLINDAMYCIN HYDROCHLORIDE
     Indication: Tooth extraction
     Dosage: 300 MG, 3X/DAY
     Route: 048
     Dates: start: 20211214
  2. CLINDAMYCIN HYDROCHLORIDE [Suspect]
     Active Substance: CLINDAMYCIN HYDROCHLORIDE
     Indication: Sinus disorder

REACTIONS (6)
  - Product taste abnormal [Unknown]
  - Poor quality product administered [Unknown]
  - Oesophagitis chemical [Unknown]
  - Chemical burn of oral cavity [Unknown]
  - Wrong technique in product usage process [Unknown]
  - Off label use [Unknown]

NARRATIVE: CASE EVENT DATE: 20211214
